FAERS Safety Report 7314917-1 (Version None)
Quarter: 2011Q1

REPORT INFORMATION
  Report Type: 
  Country: None (occurrence: None)
  Receive Date: 20110225
  Receipt Date: 20100217
  Transmission Date: 20110831
  Serious: No
  Sender: FDA-Public Use
  Company Number: US-MYLANLABS-2010S1001737

PATIENT
  Age: 15 Year
  Sex: Male
  Weight: 70.31 kg

DRUGS (5)
  1. VITAMIN E [Concomitant]
     Route: 048
  2. SINGULAIR [Concomitant]
     Route: 048
  3. AMNESTEEM [Suspect]
     Indication: ACNE
     Route: 048
     Dates: start: 20100118, end: 20100129
  4. NASONEX [Concomitant]
     Route: 055
  5. ASMANEX TWISTHALER [Concomitant]
     Route: 055

REACTIONS (1)
  - ARTHRALGIA [None]
